FAERS Safety Report 6240357-2 (Version None)
Quarter: 2009Q2

REPORT INFORMATION
  Report Type: 
  Country: None (occurrence: None)
  Receive Date: 20090623
  Receipt Date: 20080819
  Transmission Date: 20091009
  Serious: No
  Sender: FDA-Public Use
  Company Number: US-ASTRAZENECA-2008UW17094

PATIENT
  Age: 13 Year
  Sex: Male
  Weight: 68 kg

DRUGS (2)
  1. PULMICORT FLEXHALER [Suspect]
     Route: 055
     Dates: start: 20080816
  2. ALBUTEROL [Concomitant]

REACTIONS (3)
  - ASTHENIA [None]
  - COUGH [None]
  - INCORRECT DOSE ADMINISTERED [None]
